FAERS Safety Report 6025317-9 (Version None)
Quarter: 2008Q4

REPORT INFORMATION
  Report Type: 
  Country: None (occurrence: None)
  Receive Date: 20081229
  Receipt Date: 20081229
  Transmission Date: 20090506
  Serious: Yes (Hospitalization)
  Sender: FDA-Public Use
  Company Number: None

PATIENT
  Age: 37 Year
  Sex: Male
  Weight: 79.3795 kg

DRUGS (1)
  1. CITALOPRAM HYDROBROMIDE [Suspect]

REACTIONS (18)
  - AGGRESSION [None]
  - BALANCE DISORDER [None]
  - CONFUSIONAL STATE [None]
  - FALL [None]
  - HALLUCINATION, AUDITORY [None]
  - HEARING IMPAIRED [None]
  - HYPOAESTHESIA [None]
  - HYPOAESTHESIA ORAL [None]
  - HYPOPHAGIA [None]
  - INSOMNIA [None]
  - LOSS OF LIBIDO [None]
  - MENTAL IMPAIRMENT [None]
  - MOTOR DYSFUNCTION [None]
  - PARAESTHESIA [None]
  - PRURITUS GENERALISED [None]
  - RHINORRHOEA [None]
  - SUICIDAL IDEATION [None]
  - VISUAL IMPAIRMENT [None]
